FAERS Safety Report 25838460 (Version 1)
Quarter: 2025Q3

REPORT INFORMATION
  Report Type: Spontaneous
  Country: EU (occurrence: EU)
  Receive Date: 20250923
  Receipt Date: 20250923
  Transmission Date: 20251020
  Serious: Yes (Disabling)
  Sender: JOHNSON AND JOHNSON
  Company Number: None

PATIENT
  Sex: Female

DRUGS (3)
  1. PALIPERIDONE [Suspect]
     Active Substance: PALIPERIDONE
     Indication: Product used for unknown indication
     Route: 030
  2. PALIPERIDONE [Suspect]
     Active Substance: PALIPERIDONE
  3. PALIPERIDONE [Suspect]
     Active Substance: PALIPERIDONE

REACTIONS (18)
  - Gait disturbance [Unknown]
  - Somnolence [Unknown]
  - Paraesthesia [Unknown]
  - Premature menopause [Unknown]
  - Insomnia [Unknown]
  - Pruritus [Unknown]
  - Arthralgia [Unknown]
  - Salivary hypersecretion [Unknown]
  - Urinary incontinence [Unknown]
  - Constipation [Unknown]
  - Flatulence [Unknown]
  - Dyspnoea [Unknown]
  - Dizziness [Unknown]
  - Vision blurred [Unknown]
  - Peripheral swelling [Unknown]
  - Chest pain [Unknown]
  - Bradycardia [Unknown]
  - Myalgia [Unknown]
